FAERS Safety Report 16750192 (Version 1)
Quarter: 2019Q4

REPORT INFORMATION
  Report Type: Spontaneous
  Country: US (occurrence: US)
  Receive Date: 20190827
  Receipt Date: 20190827
  Transmission Date: 20200122
  Serious: Yes (Disabling, Other)
  Sender: FDA-Public Use
  Company Number: None

PATIENT
  Age: 26 Year
  Sex: Female
  Weight: 40.95 kg

DRUGS (13)
  1. PHENERGAN [Concomitant]
     Active Substance: PROMETHAZINE HYDROCHLORIDE
  2. ENBREL [Concomitant]
     Active Substance: ETANERCEPT
  3. AMITRIPTYLINE 10MG [Concomitant]
     Active Substance: AMITRIPTYLINE
  4. PROPRANOLOL [Concomitant]
     Active Substance: PROPRANOLOL HYDROCHLORIDE
  5. ZOFRAN AS NEEDED [Concomitant]
  6. BENADRYL [Concomitant]
     Active Substance: DIPHENHYDRAMINE HYDROCHLORIDE
  7. PREDNISODE 5MG [Concomitant]
  8. AMITRIPTYLINE 10MG [Concomitant]
     Active Substance: AMITRIPTYLINE
  9. PRILOSEC 40MG [Concomitant]
  10. AIMOVIG [Suspect]
     Active Substance: ERENUMAB-AOOE
     Indication: MIGRAINE
     Dates: start: 20190616, end: 20190616
  11. TUMS [Concomitant]
     Active Substance: CALCIUM CARBONATE
  12. FLEXERIL [Concomitant]
     Active Substance: CYCLOBENZAPRINE HYDROCHLORIDE
  13. PEPCID [Concomitant]
     Active Substance: FAMOTIDINE

REACTIONS (16)
  - Acne [None]
  - Drug intolerance [None]
  - Retching [None]
  - Dysmenorrhoea [None]
  - Impaired work ability [None]
  - Constipation [None]
  - Irritable bowel syndrome [None]
  - Dizziness [None]
  - Gastrooesophageal reflux disease [None]
  - Hyperaesthesia [None]
  - Hypophagia [None]
  - Ulcer [None]
  - Migraine [None]
  - Malaise [None]
  - Nausea [None]
  - Dyspepsia [None]

NARRATIVE: CASE EVENT DATE: 20190719
